FAERS Safety Report 5150382-0 (Version None)
Quarter: 2006Q4

REPORT INFORMATION
  Report Type: 
  Country: None (occurrence: None)
  Receive Date: 20061108
  Receipt Date: 20061025
  Transmission Date: 20070319
  Serious: Yes (Death)
  Sender: FDA-Public Use
  Company Number: 2006132388

PATIENT
  Sex: Male

DRUGS (1)
  1. EPIRUBICIN [Suspect]
     Indication: HEPATIC NEOPLASM
     Dosage: INTRA-ARTERIAL
     Route: 013
     Dates: start: 20040101

REACTIONS (4)
  - HEPATIC NEOPLASM MALIGNANT RECURRENT [None]
  - METASTASES TO BONE [None]
  - METASTASES TO LYMPH NODES [None]
  - NEUROENDOCRINE CARCINOMA [None]
